FAERS Safety Report 10396872 (Version 1)
Quarter: 2014Q3

REPORT INFORMATION
  Report Type: Spontaneous
  Country: DE (occurrence: FR)
  Receive Date: 20140820
  Receipt Date: 20140820
  Transmission Date: 20150326
  Serious: Yes (Hospitalization)
  Sender: FDA-Public Use
  Company Number: FR-FRI-1000069940

PATIENT
  Age: 86 Year
  Sex: Female
  Weight: 45 kg

DRUGS (5)
  1. MEMANTINE [Suspect]
     Active Substance: MEMANTINE
     Dosage: 20 MG
     Route: 048
     Dates: end: 20140526
  2. MULTIPLE VITAMINS [Concomitant]
     Active Substance: VITAMINS
  3. DIOSMINE [Concomitant]
     Active Substance: HESPERIDIN
     Route: 048
  4. PROTEIN SUPPLEMENTS [Concomitant]
     Active Substance: PROTEIN
  5. RAMIPRIL. [Suspect]
     Active Substance: RAMIPRIL
     Dosage: 5 MG
     Route: 048
     Dates: end: 20140526

REACTIONS (2)
  - Anaemia [Recovering/Resolving]
  - Renal failure [Recovered/Resolved]

NARRATIVE: CASE EVENT DATE: 20140526
